FAERS Safety Report 13458695 (Version 3)
Quarter: 2017Q2

REPORT INFORMATION
  Report Type: Spontaneous
  Country: IL (occurrence: IL)
  Receive Date: 20170419
  Receipt Date: 20170607
  Transmission Date: 20170830
  Serious: Yes (Death, Life-Threatening, Hospitalization)
  Sender: FDA-Public Use
  Company Number: IL-UNITED THERAPEUTICS-UNT-2017-005459

PATIENT
  Age: 1 Year
  Sex: Female

DRUGS (1)
  1. REMODULIN [Suspect]
     Active Substance: TREPROSTINIL
     Indication: PULMONARY ARTERIAL HYPERTENSION
     Dosage: 2.25 UNITS/HOUR, CONTINUING
     Route: 058
     Dates: start: 20161219

REACTIONS (2)
  - Cardiac arrest [Recovering/Resolving]
  - Oxygen saturation decreased [Fatal]

NARRATIVE: CASE EVENT DATE: 20170323
